FAERS Safety Report 6254373-8 (Version None)
Quarter: 2009Q3

REPORT INFORMATION
  Report Type: 
  Country: None (occurrence: None)
  Receive Date: 20090702
  Receipt Date: 20090626
  Transmission Date: 20100115
  Serious: Yes (Other)
  Sender: FDA-Public Use
  Company Number: US-ROCHE-605949

PATIENT
  Age: 72 Year
  Sex: Female

DRUGS (4)
  1. BONIVA [Suspect]
     Indication: OSTEOPENIA
     Route: 048
     Dates: start: 20070601
  2. BONIVA [Suspect]
     Route: 048
     Dates: start: 20081115, end: 20090615
  3. LISINOPRIL [Concomitant]
     Dosage: DRUG: LOSINOPRIL
  4. HYDROCHLOROTHIAZIDE [Concomitant]
     Dosage: DRUG: HYDROCHLOROTHYAZIDE

REACTIONS (6)
  - ABDOMINAL PAIN UPPER [None]
  - ARTHRALGIA [None]
  - DYSPEPSIA [None]
  - ERUCTATION [None]
  - GASTRIC DISORDER [None]
  - SPINAL FRACTURE [None]
